FAERS Safety Report 8204329-0 (Version None)
Quarter: 2012Q1

REPORT INFORMATION
  Report Type: 
  Country: None (occurrence: None)
  Receive Date: 20120313
  Receipt Date: 20120309
  Transmission Date: 20120608
  Serious: No
  Sender: FDA-Public Use
  Company Number: US-PFIZER INC-2012063538

PATIENT
  Sex: Female
  Weight: 45.351 kg

DRUGS (8)
  1. ACETAMINOPHEN [Suspect]
     Indication: PAIN
     Dosage: UNK
  2. BUMETANIDE [Concomitant]
     Indication: DIURETIC THERAPY
     Dosage: 0.5 MG, DAILY
  3. LOSARTAN [Concomitant]
     Dosage: UNK
  4. SYNTHROID [Concomitant]
     Indication: HYPOTHYROIDISM
     Dosage: UNK
  5. TIKOSYN [Suspect]
     Indication: CARDIAC FAILURE CONGESTIVE
     Dosage: 125 UG, 2X/DAY
     Route: 048
     Dates: start: 20111201
  6. ACETYLSALICYLIC ACID [Concomitant]
     Indication: ANTICOAGULANT THERAPY
     Dosage: 81 MG, DAILY
  7. ACETYLSALICYLIC ACID [Concomitant]
     Indication: CARDIAC DISORDER
  8. CARVEDILOL [Concomitant]
     Dosage: UNK

REACTIONS (7)
  - BACK PAIN [None]
  - MUSCULOSKELETAL CHEST PAIN [None]
  - DYSPNOEA [None]
  - GAIT DISTURBANCE [None]
  - CONSTIPATION [None]
  - CRYING [None]
  - PALPITATIONS [None]
